FAERS Safety Report 17210947 (Version 6)
Quarter: 2020Q3

REPORT INFORMATION
  Report Type: Report from Study
  Country: US (occurrence: US)
  Receive Date: 20191227
  Receipt Date: 20200819
  Transmission Date: 20201102
  Serious: Yes (Hospitalization)
  Sender: FDA-Public Use
  Company Number: US-ACTELION-A-NJ2019-194460

PATIENT
  Age: 76 Year
  Sex: Female
  Weight: 82.09 kg

DRUGS (4)
  1. ADEMPAS [Concomitant]
     Active Substance: RIOCIGUAT
     Dosage: 2.5 MG, TID
     Dates: start: 201906
  2. AUGMENTIN BD [Suspect]
     Active Substance: AMOXICILLIN\CLAVULANIC ACID
     Indication: PRODUCT USED FOR UNKNOWN INDICATION
     Route: 065
  3. LETAIRIS [Concomitant]
     Active Substance: AMBRISENTAN
     Dosage: 10 MG, QD
     Dates: start: 201610
  4. UPTRAVI [Suspect]
     Active Substance: SELEXIPAG
     Indication: PULMONARY ARTERIAL HYPERTENSION
     Dosage: 1600 MCG, BID
     Route: 048
     Dates: start: 201704

REACTIONS (14)
  - Pleural effusion [Unknown]
  - Sinus disorder [Unknown]
  - Fluid retention [Unknown]
  - Renal failure [Unknown]
  - Cystitis [Unknown]
  - Cardiac failure congestive [Unknown]
  - Oedema peripheral [Unknown]
  - Decreased appetite [Unknown]
  - Feeling abnormal [Unknown]
  - Sinus congestion [Not Recovered/Not Resolved]
  - Urinary tract infection [Recovered/Resolved]
  - Dyspnoea [Recovered/Resolved]
  - Weight decreased [Unknown]
  - Large intestine polyp [Unknown]

NARRATIVE: CASE EVENT DATE: 20190808
